FAERS Safety Report 22865967 (Version 5)
Quarter: 2025Q2

REPORT INFORMATION
  Report Type: Spontaneous
  Country: US (occurrence: US)
  Receive Date: 20230825
  Receipt Date: 20250617
  Transmission Date: 20250717
  Serious: Yes (Death, Hospitalization, Other)
  Sender: DOMPE FARMACEUTICI
  Company Number: US-FARMAPROD-202308-2457

PATIENT
  Sex: Female
  Weight: 82.74 kg

DRUGS (36)
  1. OXERVATE [Suspect]
     Active Substance: CENEGERMIN-BKBJ
     Indication: Neurotrophic keratopathy
     Route: 047
     Dates: start: 20230710, end: 20230904
  2. OXERVATE [Suspect]
     Active Substance: CENEGERMIN-BKBJ
     Route: 047
     Dates: start: 20240123, end: 20240326
  3. OXERVATE [Suspect]
     Active Substance: CENEGERMIN-BKBJ
     Route: 047
     Dates: start: 20240408, end: 20240603
  4. OXERVATE [Suspect]
     Active Substance: CENEGERMIN-BKBJ
     Route: 047
     Dates: start: 20240620, end: 202407
  5. OXERVATE [Suspect]
     Active Substance: CENEGERMIN-BKBJ
     Route: 047
     Dates: start: 20250226, end: 20250423
  6. MELATONIN [Concomitant]
     Active Substance: MELATONIN
  7. LIDOCAINE [Concomitant]
     Active Substance: LIDOCAINE
  8. ORTIKOS [Concomitant]
     Active Substance: BUDESONIDE
  9. ALBUTEROL SULFATE [Concomitant]
     Active Substance: ALBUTEROL SULFATE
  10. ONDANSETRON [Concomitant]
     Active Substance: ONDANSETRON
  11. FAMOTIDINE [Concomitant]
     Active Substance: FAMOTIDINE
  12. HYDROXYZINE HYDROCHLORIDE [Concomitant]
     Active Substance: HYDROXYZINE HYDROCHLORIDE
  13. TORSEMIDE [Concomitant]
     Active Substance: TORSEMIDE
  14. DILTIAZEM [Concomitant]
     Active Substance: DILTIAZEM
  15. CARVEDILOL [Concomitant]
     Active Substance: CARVEDILOL
  16. PREMARIN [Concomitant]
     Active Substance: ESTROGENS, CONJUGATED
  17. ELIQUIS [Concomitant]
     Active Substance: APIXABAN
  18. POTASSIUM CHLORIDE [Concomitant]
     Active Substance: POTASSIUM CHLORIDE
  19. INSULIN LISPRO KWIKPEN U-100 [Concomitant]
  20. HYDRALAZINE HCL [Concomitant]
     Active Substance: HYDRALAZINE HYDROCHLORIDE
  21. VITAMIN D2 [Concomitant]
     Active Substance: ERGOCALCIFEROL
  22. ACETAMINOPHEN [Concomitant]
     Active Substance: ACETAMINOPHEN
  23. SPIRIVA RESPIMAT [Concomitant]
     Active Substance: TIOTROPIUM BROMIDE
  24. LANTUS SOLOSTAR [Concomitant]
     Active Substance: INSULIN GLARGINE
  25. TRINTELLIX [Concomitant]
     Active Substance: VORTIOXETINE HYDROBROMIDE
  26. LEVOTHYROXINE SODIUM [Concomitant]
     Active Substance: LEVOTHYROXINE SODIUM
  27. FLUTICASONE PROPIONATE [Concomitant]
     Active Substance: FLUTICASONE PROPIONATE
  28. AZELASTINE HYDROCHLORIDE [Concomitant]
     Active Substance: AZELASTINE HYDROCHLORIDE
  29. ALLOPURINOL [Concomitant]
     Active Substance: ALLOPURINOL
  30. PREGABALIN [Concomitant]
     Active Substance: PREGABALIN
  31. FEXOFENADINE HYDROCHLORIDE [Concomitant]
     Active Substance: FEXOFENADINE HYDROCHLORIDE
  32. ATORVASTATIN CALCIUM [Concomitant]
     Active Substance: ATORVASTATIN CALCIUM
  33. MONTELUKAST SODIUM [Concomitant]
     Active Substance: MONTELUKAST SODIUM
  34. TYRVAYA [Concomitant]
     Active Substance: VARENICLINE TARTRATE
     Route: 045
     Dates: start: 20240321
  35. XIIDRA [Concomitant]
     Active Substance: LIFITEGRAST
     Route: 061
     Dates: start: 20231121
  36. VALTREX [Concomitant]
     Active Substance: VALACYCLOVIR HYDROCHLORIDE
     Route: 048
     Dates: start: 20240215

REACTIONS (5)
  - Dialysis [Unknown]
  - Hospitalisation [Recovered/Resolved]
  - Product dose omission issue [Unknown]
  - Fall [Fatal]
  - Pelvic fracture [Fatal]
